FAERS Safety Report 9374264 (Version 5)
Quarter: 2013Q4

REPORT INFORMATION
  Report Type: Spontaneous
  Country: US (occurrence: US)
  Receive Date: 20130628
  Receipt Date: 20131126
  Transmission Date: 20140711
  Serious: No
  Sender: FDA-Public Use
  Company Number: US-PFIZER INC-2013190506

PATIENT
  Age: 71 Year
  Sex: Female
  Weight: 94 kg

DRUGS (7)
  1. XELJANZ [Suspect]
     Indication: RHEUMATOID ARTHRITIS
     Dosage: 5 MG, 2X/DAY (TAKE ONE)
     Route: 048
     Dates: start: 20130509
  2. ATENOLOL [Concomitant]
     Dosage: 100 MG, 1X/DAY
     Route: 048
     Dates: start: 20080906
  3. ATORVASTATIN CALCIUM [Concomitant]
     Dosage: 20 MG, ONCE DAILY
     Route: 048
     Dates: start: 20091102
  4. HYDROCHLOROTHIAZIDE [Concomitant]
     Dosage: 25 MG, 1X/DAY
     Route: 048
     Dates: start: 20120815
  5. PREDNISOLONE ACETATE [Concomitant]
     Indication: EYE OPERATION
     Dosage: 1 GTT (1 DROP TO OPERATED EYE EVERY 2 HOURS WHILE AWAKE)
     Route: 047
     Dates: start: 20130215
  6. RANITIDINE HYDROCHLORIDE [Concomitant]
     Dosage: 300MG ONCE DAILY OR TWO DAILY AS DIRECTED
     Route: 048
     Dates: start: 20121204
  7. ZYRTEC ALLERGY [Concomitant]
     Dosage: 10 MG, 2X/DAY
     Route: 048
     Dates: start: 20130102

REACTIONS (6)
  - Dermatitis contact [Unknown]
  - Pruritus [Unknown]
  - Swelling [Unknown]
  - Oedema peripheral [Unknown]
  - Blister [Unknown]
  - Weight increased [Unknown]
